FAERS Safety Report 7780834-6 (Version None)
Quarter: 2011Q3

REPORT INFORMATION
  Report Type: 
  Country: None (occurrence: None)
  Receive Date: 20110927
  Receipt Date: 20110921
  Transmission Date: 20111222
  Serious: Yes (Other)
  Sender: FDA-Public Use
  Company Number: CA-PFIZER INC-2011225389

PATIENT
  Sex: Female

DRUGS (2)
  1. ARIPIPRAZOLE [Suspect]
  2. ZIPRASIDONE HYDROCHLORIDE [Suspect]
     Dosage: 60 MG, 2X/DAY

REACTIONS (3)
  - TARDIVE DYSKINESIA [None]
  - BIPOLAR DISORDER [None]
  - EATING DISORDER [None]
